FAERS Safety Report 10120409 (Version 1)
Quarter: 2014Q2

REPORT INFORMATION
  Report Type: Spontaneous
  Country: US (occurrence: US)
  Receive Date: 20140425
  Receipt Date: 20140425
  Transmission Date: 20141212
  Serious: No
  Sender: FDA-Public Use
  Company Number: US-PFIZER INC-2014114613

PATIENT
  Age: 15 Year
  Sex: Male
  Weight: 49.9 kg

DRUGS (1)
  1. QUILLIVANT XR [Suspect]
     Indication: ATTENTION DEFICIT/HYPERACTIVITY DISORDER
     Dosage: 12 ML, UNK
     Dates: start: 20140422

REACTIONS (2)
  - Tremor [Unknown]
  - Insomnia [Unknown]
